FAERS Safety Report 12376790 (Version 2)
Quarter: 2016Q2

REPORT INFORMATION
  Report Type: Spontaneous
  Country: US (occurrence: US)
  Receive Date: 20160517
  Receipt Date: 20160517
  Transmission Date: 20160815
  Serious: No
  Sender: FDA-Public Use
  Company Number: US-MALLINCKRODT-T201502821

PATIENT
  Age: 61 Year
  Sex: Female
  Weight: 79 kg

DRUGS (5)
  1. H.P. ACTHAR [Suspect]
     Active Substance: CORTICOTROPIN
     Dosage: 80 UNITS TWICE PER WEEK
     Route: 058
     Dates: start: 201403, end: 201407
  2. H.P. ACTHAR [Suspect]
     Active Substance: CORTICOTROPIN
     Dosage: 80 UNITS TWICE PER WEEK
     Route: 058
     Dates: start: 201412
  3. H.P. ACTHAR [Suspect]
     Active Substance: CORTICOTROPIN
     Indication: FOCAL SEGMENTAL GLOMERULOSCLEROSIS
     Dosage: 80 UNITS TWICE PER WEEK
     Route: 058
     Dates: start: 20131025
  4. H.P. ACTHAR [Suspect]
     Active Substance: CORTICOTROPIN
     Dosage: 40 UNITS TWICE A WEEK (WED/SAT)
     Route: 058
     Dates: start: 201512
  5. H.P. ACTHAR [Suspect]
     Active Substance: CORTICOTROPIN
     Dosage: 40 UNITS TWICE A WEEK (SUN/THURS)
     Route: 058

REACTIONS (3)
  - Blood pressure decreased [Recovering/Resolving]
  - Middle insomnia [Recovered/Resolved]
  - Weight decreased [Not Recovered/Not Resolved]

NARRATIVE: CASE EVENT DATE: 201403
